FAERS Safety Report 13591043 (Version 2)
Quarter: 2017Q2

REPORT INFORMATION
  Report Type: Spontaneous
  Country: US (occurrence: US)
  Receive Date: 20170530
  Receipt Date: 20170628
  Transmission Date: 20170830
  Serious: Yes (Other)
  Sender: FDA-Public Use
  Company Number: US-PFIZER INC-2017222026

PATIENT
  Age: 47 Year
  Sex: Male

DRUGS (1)
  1. PHENYTOIN. [Suspect]
     Active Substance: PHENYTOIN
     Indication: SEIZURE
     Dosage: 100 MG, 3X/DAY

REACTIONS (4)
  - Demyelination [Recovering/Resolving]
  - Toxicity to various agents [Recovering/Resolving]
  - Axonal neuropathy [Recovering/Resolving]
  - Neuropathy peripheral [Recovering/Resolving]
